FAERS Safety Report 9385633 (Version 1)
Quarter: 2013Q3

REPORT INFORMATION
  Report Type: Spontaneous
  Country: DE (occurrence: DE)
  Receive Date: 20130705
  Receipt Date: 20130705
  Transmission Date: 20140515
  Serious: Yes (Congenital Anomaly, Other)
  Sender: FDA-Public Use
  Company Number: DE-ABBOTT-13X-062-1115085-00

PATIENT
  Sex: 0

DRUGS (1)
  1. ERGENYL CHRONO [Suspect]
     Indication: MATERNAL EXPOSURE TIMING UNSPECIFIED
     Route: 064

REACTIONS (16)
  - Breech presentation [Unknown]
  - Dysmorphism [Unknown]
  - Dysmorphism [Unknown]
  - Craniosynostosis [Unknown]
  - Congenital eyelid malformation [Unknown]
  - Low set ears [Unknown]
  - Ear malformation [Unknown]
  - Congenital nose malformation [Unknown]
  - Enlarged clitoris [Unknown]
  - Neonatal respiratory distress syndrome [Unknown]
  - Dyspnoea [Unknown]
  - Oxygen supplementation [Unknown]
  - Hypertonia neonatal [Unknown]
  - Motor dysfunction [Unknown]
  - Low birth weight baby [Unknown]
  - Foetal exposure during pregnancy [Unknown]
